FAERS Safety Report 25383348 (Version 1)
Quarter: 2025Q2

REPORT INFORMATION
  Report Type: Spontaneous
  Country: US (occurrence: US)
  Receive Date: 20250602
  Receipt Date: 20250602
  Transmission Date: 20250717
  Serious: Yes (Other)
  Sender: AMGEN
  Company Number: US-AMGEN-USASP2025102510

PATIENT
  Age: 39 Year
  Sex: Female

DRUGS (4)
  1. USTEKINUMAB [Suspect]
     Active Substance: USTEKINUMAB
     Indication: Colitis ulcerative
     Route: 065
  2. INFLIXIMAB [Suspect]
     Active Substance: INFLIXIMAB
     Indication: Colitis ulcerative
     Route: 065
  3. AZATHIOPRINE [Concomitant]
     Active Substance: AZATHIOPRINE
  4. VEDOLIZUMAB [Concomitant]
     Active Substance: VEDOLIZUMAB

REACTIONS (4)
  - Adenocarcinoma of appendix [Unknown]
  - Metastases to gallbladder [Unknown]
  - Metastases to peritoneum [Unknown]
  - Therapy non-responder [Unknown]
